FAERS Safety Report 19882899 (Version 2)
Quarter: 2021Q4

REPORT INFORMATION
  Report Type: Spontaneous
  Country: US (occurrence: US)
  Receive Date: 20210924
  Receipt Date: 20211112
  Transmission Date: 20220303
  Serious: No
  Sender: FDA-Public Use
  Company Number: US-LEADINGPHARMA-US-2021LEASPO00290

PATIENT

DRUGS (1)
  1. LORAZEPAM [Suspect]
     Active Substance: LORAZEPAM
     Indication: Anxiety
     Route: 065

REACTIONS (6)
  - Drug ineffective [Unknown]
  - Suspected product quality issue [None]
  - Panic attack [Unknown]
  - Fatigue [Unknown]
  - Anxiety [Unknown]
  - Somnolence [Unknown]
